FAERS Safety Report 7591780-5 (Version None)
Quarter: 2011Q3

REPORT INFORMATION
  Report Type: 
  Country: None (occurrence: None)
  Receive Date: 20110701
  Receipt Date: 20110701
  Transmission Date: 20111222
  Serious: Yes (Life-Threatening)
  Sender: FDA-Public Use
  Company Number: None

PATIENT
  Age: 48 Year
  Sex: Male
  Weight: 113.3993 kg

DRUGS (1)
  1. METHADONE HCL [Suspect]
     Indication: BACK PAIN
     Dosage: 10 MG 4 EVERY 4 HOURS PO
     Route: 048
     Dates: start: 20080101, end: 20110701

REACTIONS (8)
  - HYPOPNOEA [None]
  - LOSS OF CONSCIOUSNESS [None]
  - MYOCARDIAL INFARCTION [None]
  - SOMNOLENCE [None]
  - CONFUSIONAL STATE [None]
  - SPEECH DISORDER [None]
  - ABASIA [None]
  - RESPIRATORY ARREST [None]
